FAERS Safety Report 4446716-2 (Version None)
Quarter: 2004Q3

REPORT INFORMATION
  Report Type: 
  Country: None (occurrence: None)
  Receive Date: 20040908
  Receipt Date: 20040825
  Transmission Date: 20050211
  Serious: Yes (Other)
  Sender: FDA-Public Use
  Company Number: 2004IC000853

PATIENT
  Age: 64 Year
  Sex: Male

DRUGS (3)
  1. FLUOROURACIL [Suspect]
     Indication: METASTASES TO LIVER
     Dosage: 500MG;WEEKLY;INTRA-ARTERIAL
     Route: 013
  2. MITOMYCIN [Concomitant]
     Indication: METASTASES TO LIVER
     Dosage: 4MG;WEEKLY;INTRA-ARTERIAL
     Route: 013
  3. EPIRUBICIN [Suspect]
     Indication: METASTASES TO LIVER
     Dosage: 40 MG; WEEKLY; INTRA-ARTERIAL
     Route: 013

REACTIONS (2)
  - AORTIC DISSECTION [None]
  - PROCEDURAL COMPLICATION [None]
